FAERS Safety Report 5146884-3 (Version None)
Quarter: 2006Q4

REPORT INFORMATION
  Report Type: 
  Country: None (occurrence: None)
  Receive Date: 20061109
  Receipt Date: 20051228
  Transmission Date: 20070319
  Serious: Yes (Hospitalization)
  Sender: FDA-Public Use
  Company Number: JP-GLAXOSMITHKLINE-B0445660A

PATIENT
  Age: 58 Year
  Sex: Male
  Weight: 46 kg

DRUGS (9)
  1. ALKERAN [Suspect]
     Indication: STEM CELL TRANSPLANT
     Dosage: 60MG PER DAY
     Route: 042
     Dates: start: 20051217, end: 20051218
  2. FLUDARA [Concomitant]
     Indication: NON-HODGKIN'S LYMPHOMA
     Dosage: 36MG PER DAY
     Route: 042
     Dates: start: 20051215, end: 20051219
  3. KYTRIL [Concomitant]
     Route: 042
     Dates: start: 20051215, end: 20051219
  4. PROGRAF [Concomitant]
     Route: 042
     Dates: start: 20051218, end: 20060125
  5. BETAMETHASONE SODIUM PHOSPHATE [Concomitant]
     Indication: PROPHYLAXIS
     Dosage: 4MG PER DAY
     Route: 042
     Dates: start: 20051220, end: 20051220
  6. GLYCEOL [Concomitant]
     Indication: PROPHYLAXIS
     Dosage: 200ML PER DAY
     Route: 042
     Dates: start: 20051220, end: 20051220
  7. FUNGUARD [Concomitant]
     Indication: ANTIFUNGAL PROPHYLAXIS
     Dosage: 75MG PER DAY
     Route: 042
     Dates: start: 20051215
  8. VENOGLOBULIN [Concomitant]
     Indication: INFECTION PROPHYLAXIS
     Dosage: 5MG PER DAY
     Route: 042
     Dates: start: 20051220, end: 20051220
  9. MAXIPIME [Concomitant]
     Indication: SEPSIS
     Dosage: 4G PER DAY
     Route: 042
     Dates: start: 20051220, end: 20051225

REACTIONS (3)
  - CYSTITIS HAEMORRHAGIC [None]
  - HAEMATURIA [None]
  - URINARY RETENTION [None]
